FAERS Safety Report 8318367-0 (Version None)
Quarter: 2012Q2

REPORT INFORMATION
  Report Type: 
  Country: None (occurrence: None)
  Receive Date: 20120425
  Receipt Date: 20120409
  Transmission Date: 20120825
  Serious: Yes (Hospitalization)
  Sender: FDA-Public Use
  Company Number: 2012MA004735

PATIENT
  Sex: Female

DRUGS (2)
  1. FEVERALL [Suspect]
     Route: 054
  2. IBUPROFEN [Suspect]
     Route: 048

REACTIONS (7)
  - LIVER INJURY [None]
  - ACUTE HEPATIC FAILURE [None]
  - TRANSFUSION-RELATED ACUTE LUNG INJURY [None]
  - ERYTHRODERMIC PSORIASIS [None]
  - PNEUMONIA [None]
  - EXTRACORPOREAL CIRCULATION [None]
  - RESPIRATORY FAILURE [None]
